FAERS Safety Report 4840639-2 (Version None)
Quarter: 2005Q4

REPORT INFORMATION
  Report Type: 
  Country: None (occurrence: None)
  Receive Date: 20051125
  Receipt Date: 20051024
  Transmission Date: 20060501
  Serious: No
  Sender: FDA-Public Use
  Company Number: 200513195BCC

PATIENT
  Age: 69 Year
  Sex: Female

DRUGS (2)
  1. ALEVE (CAPLET) [Suspect]
     Indication: ARTHRITIS
     Dosage: 220 MG, ONCE ; ORAL
     Route: 048
     Dates: start: 20050807
  2. CALCIUM GLUCONATE [Concomitant]

REACTIONS (1)
  - FAECES DISCOLOURED [None]
